FAERS Safety Report 6599906-7 (Version None)
Quarter: 2010Q1

REPORT INFORMATION
  Report Type: 
  Country: None (occurrence: None)
  Receive Date: 20100224
  Receipt Date: 20100211
  Transmission Date: 20100710
  Serious: Yes (Disabling, Other)
  Sender: FDA-Public Use
  Company Number: US-CELGENEUS-163-21880-07030786

PATIENT
  Sex: Female

DRUGS (6)
  1. REVLIMID [Suspect]
     Indication: MULTIPLE MYELOMA
     Route: 048
     Dates: start: 20070108, end: 20070101
  2. DEXAMETHASONE [Suspect]
     Route: 065
     Dates: start: 20060601
  3. PAMIDRONATE DISODIUM [Suspect]
     Route: 065
     Dates: start: 20060601
  4. ATENOLOL [Concomitant]
     Indication: HYPERTROPHIC CARDIOMYOPATHY
     Route: 065
     Dates: start: 20060601, end: 20070115
  5. ASPIRIN [Concomitant]
     Route: 065
     Dates: start: 20060601, end: 20070115
  6. PROCRIT [Concomitant]
     Route: 065
     Dates: start: 20070105

REACTIONS (7)
  - ABASIA [None]
  - ABDOMINAL DISCOMFORT [None]
  - DIZZINESS [None]
  - DRUG INTOLERANCE [None]
  - FALL [None]
  - FATIGUE [None]
  - VOMITING [None]
